FAERS Safety Report 4555155-5 (Version None)
Quarter: 2005Q1

REPORT INFORMATION
  Report Type: 
  Country: None (occurrence: None)
  Receive Date: 20050118
  Receipt Date: 20041122
  Transmission Date: 20050727
  Serious: Yes (Hospitalization)
  Sender: FDA-Public Use
  Company Number: DE-MERCK-0411DEU00424

PATIENT
  Age: 50 Year
  Sex: Female

DRUGS (6)
  1. VIOXX [Suspect]
     Indication: RHEUMATOID ARTHRITIS
     Route: 048
     Dates: start: 20040701, end: 20040801
  2. TRAMADOL HYDROCHLORIDE [Concomitant]
     Route: 065
     Dates: start: 20010101
  3. PREDNISOLONE [Concomitant]
     Route: 065
     Dates: start: 20010101
  4. ESOMEPRAZOLE MAGNESIUM [Concomitant]
     Route: 065
     Dates: start: 20040101
  5. LEFLUNOMIDE [Concomitant]
     Route: 065
     Dates: start: 20011120
  6. BISOPROLOL FUMARATE [Concomitant]
     Route: 065
     Dates: start: 20040801, end: 20040818

REACTIONS (2)
  - CYANOSIS [None]
  - GRAND MAL CONVULSION [None]
